FAERS Safety Report 7708629 (Version 5)
Quarter: 2012Q4

REPORT INFORMATION
  Report Type: 
  Country: US (occurrence: US)
  Receive Date: 20101214
  Receipt Date: 20121019
  Transmission Date: 20130627
  Serious: Yes (Hospitalization, Other)
  Sender: FDA-Public Use
  Company Number: US-ASTRAZENECA-2010SE13681

PATIENT
  Age: 76 Year
  Sex: Female
  Weight: 58.5 kg

DRUGS (2)
  1. NEXIUM [Suspect]
     Route: 048
  2. CRESTOR [Suspect]
     Route: 048
     Dates: start: 201001

REACTIONS (9)
  - Cardiac failure congestive [Unknown]
  - Blindness unilateral [Unknown]
  - Cataract [Unknown]
  - Back pain [Recovering/Resolving]
  - Gastritis [Unknown]
  - Pain in extremity [Recovering/Resolving]
  - Dyspnoea [Unknown]
  - Eye disorder [Unknown]
  - Musculoskeletal disorder [Unknown]
